FAERS Safety Report 5115890-7 (Version None)
Quarter: 2006Q3

REPORT INFORMATION
  Report Type: 
  Country: None (occurrence: None)
  Receive Date: 20060927
  Receipt Date: 20050802
  Transmission Date: 20061208
  Serious: No
  Sender: FDA-Public Use
  Company Number: US-BRISTOL-MYERS SQUIBB COMPANY-13060900

PATIENT
  Age: 29 Year
  Sex: Female

DRUGS (1)
  1. DEFINITY [Suspect]
     Dates: start: 20050802

REACTIONS (2)
  - DYSGEUSIA [None]
  - SENSORY DISTURBANCE [None]
